FAERS Safety Report 6087306-8 (Version None)
Quarter: 2009Q1

REPORT INFORMATION
  Report Type: 
  Country: None (occurrence: None)
  Receive Date: 20090223
  Receipt Date: 20090218
  Transmission Date: 20090719
  Serious: Yes (Other)
  Sender: FDA-Public Use
  Company Number: A0769113A

PATIENT
  Age: 90 Year
  Sex: Female

DRUGS (18)
  1. ADVAIR HFA [Suspect]
     Indication: ASTHMA
     Dosage: 1PUFF TWICE PER DAY
     Route: 055
     Dates: start: 19990101
  2. PROVENTIL [Suspect]
     Dates: start: 20090101
  3. ALBUTEROL [Concomitant]
  4. PROVENTIL [Concomitant]
  5. PREDNISONE TAB [Concomitant]
  6. OMEPRAZOLE [Concomitant]
  7. FERROSULFAT [Concomitant]
  8. CALCIUM [Concomitant]
  9. CENTRUM SILVER [Concomitant]
  10. GLUCOSAMINE [Concomitant]
  11. CHONDROITIN [Concomitant]
  12. MSM [Concomitant]
  13. LISINOPRIL [Concomitant]
  14. EYE MEDICATION [Concomitant]
  15. TRAVATAN [Concomitant]
  16. OXYCODONE [Concomitant]
  17. CITALOPRAM HYDROBROMIDE [Concomitant]
  18. ALPRAZOLAM [Concomitant]

REACTIONS (5)
  - CATARACT OPERATION [None]
  - DYSPNOEA [None]
  - GLAUCOMA [None]
  - MOVEMENT DISORDER [None]
  - OSTEOPOROSIS [None]
